FAERS Safety Report 15428998 (Version 1)
Quarter: 2018Q3

REPORT INFORMATION
  Report Type: Spontaneous
  Country: US (occurrence: US)
  Receive Date: 20180919
  Receipt Date: 20180919
  Transmission Date: 20181010
  Serious: No
  Sender: FDA-Public Use
  Company Number: None

PATIENT
  Age: 76 Year

DRUGS (1)
  1. ENOXAPARIN SYR 60MG/0.6ML [Suspect]
     Active Substance: ENOXAPARIN
     Indication: CEREBROVASCULAR ACCIDENT
     Dates: start: 201808

REACTIONS (2)
  - Cerebrovascular accident [None]
  - Drug dose omission [None]

NARRATIVE: CASE EVENT DATE: 20180917
